FAERS Safety Report 8548244-1 (Version None)
Quarter: 2012Q3

REPORT INFORMATION
  Report Type: 
  Country: None (occurrence: None)
  Receive Date: 20120730
  Receipt Date: 20120724
  Transmission Date: 20120928
  Serious: No
  Sender: FDA-Public Use
  Company Number: US-009507513-2012SP033082

PATIENT

DRUGS (5)
  1. SAPHRIS [Suspect]
     Indication: BIPOLAR DISORDER
  2. SAPHRIS [Suspect]
     Indication: DEPRESSION
     Dosage: 5 MG, BID
     Route: 060
     Dates: start: 20110822, end: 20110907
  3. ARMOUR THYROID TABLETS [Concomitant]
  4. WELCHOL [Concomitant]
  5. SPIRIVA [Concomitant]

REACTIONS (6)
  - SOMNOLENCE [None]
  - ABDOMINAL DISTENSION [None]
  - ALOPECIA [None]
  - CONSTIPATION [None]
  - DRUG INEFFECTIVE [None]
  - INAPPROPRIATE SCHEDULE OF DRUG ADMINISTRATION [None]
